FAERS Safety Report 20150105 (Version 8)
Quarter: 2022Q4

REPORT INFORMATION
  Report Type: Report from Study
  Country: JP (occurrence: JP)
  Receive Date: 20211206
  Receipt Date: 20221102
  Transmission Date: 20230113
  Serious: Yes (Hospitalization, Other)
  Sender: FDA-Public Use
  Company Number: JP-ONO-2020JP005742

PATIENT
  Age: 65 Year
  Sex: Male
  Weight: 69.1 kg

DRUGS (10)
  1. ETELCALCETIDE [Suspect]
     Active Substance: ETELCALCETIDE
     Indication: Hyperparathyroidism secondary
     Dosage: 5 MILLIGRAM, 3 TIMES/WK
     Route: 010
     Dates: start: 20190813, end: 20190909
  2. ETELCALCETIDE [Suspect]
     Active Substance: ETELCALCETIDE
     Dosage: 2.5 MG, Q56H
     Route: 010
     Dates: start: 20190912
  3. FOSRENOL [Concomitant]
     Active Substance: LANTHANUM CARBONATE
     Dosage: 2250 MG, EVERYDAY
     Route: 048
     Dates: end: 20210723
  4. OXAROL [Concomitant]
     Active Substance: MAXACALCITOL
     Dosage: 5 MICROGRAM
     Route: 041
     Dates: end: 20190410
  5. OXAROL [Concomitant]
     Active Substance: MAXACALCITOL
     Dosage: 7.5 MICROGRAM, 3 TIMES/WK
     Route: 041
     Dates: start: 20190412, end: 20190909
  6. OXAROL [Concomitant]
     Active Substance: MAXACALCITOL
     Dosage: 5 MICROGRAM, 3 TIMES/WK
     Route: 041
     Dates: start: 20191029, end: 20191210
  7. OXAROL [Concomitant]
     Active Substance: MAXACALCITOL
     Dosage: 2.5 MICROGRAM, 3 TIMES/WK
     Route: 041
     Dates: start: 20200118, end: 20200310
  8. OXAROL [Concomitant]
     Active Substance: MAXACALCITOL
     Dosage: 5 MICROGRAM, 3 TIMES/WK
     Route: 041
     Dates: start: 20200312, end: 20201215
  9. RENAGEL [Concomitant]
     Active Substance: SEVELAMER HYDROCHLORIDE
     Dosage: 1500 MG, EVERYDAY
     Route: 048
     Dates: end: 20210723
  10. Fesin [Concomitant]
     Dosage: 40 MG, QW
     Route: 042
     Dates: start: 20210501, end: 20210511

REACTIONS (13)
  - Coronary artery stenosis [Recovered/Resolved]
  - Extremity necrosis [Recovered/Resolved]
  - Skin ulcer [Recovered/Resolved]
  - Postoperative wound infection [Recovered/Resolved]
  - Shunt occlusion [Recovered/Resolved]
  - Oedema peripheral [Recovered/Resolved]
  - Contusion [Recovering/Resolving]
  - Fall [Unknown]
  - Contusion [Recovering/Resolving]
  - Pain in jaw [Recovered/Resolved]
  - Shunt stenosis [Recovered/Resolved]
  - Shunt stenosis [Recovered/Resolved]
  - Shunt stenosis [Recovered/Resolved]

NARRATIVE: CASE EVENT DATE: 20191002
